FAERS Safety Report 7053911-5 (Version None)
Quarter: 2010Q4

REPORT INFORMATION
  Report Type: 
  Country: None (occurrence: None)
  Receive Date: 20101014
  Receipt Date: 20100929
  Transmission Date: 20110411
  Serious: Yes (Hospitalization, Other)
  Sender: FDA-Public Use
  Company Number: DSJ-2010-11660

PATIENT
  Age: 57 Year
  Sex: Female

DRUGS (4)
  1. BENICAR [Suspect]
     Indication: HYPERTENSION
     Dosage: 20 MG (20 MG, 1 IN 1 D), PER ORAL
     Route: 048
     Dates: start: 20090101
  2. CALCIUM (CALCIUM) (CALCIUM) [Concomitant]
  3. VITAMIN C (ASCORBIC ACID) (ASCORBIC ACID) [Concomitant]
  4. HYPOTHYROIDISM MEDICINE (THYROID PREPARATIONS) [Concomitant]

REACTIONS (2)
  - DIVERTICULITIS [None]
  - PERITONITIS [None]
